FAERS Safety Report 11118645 (Version 3)
Quarter: 2017Q1

REPORT INFORMATION
  Report Type: Spontaneous
  Country: US (occurrence: US)
  Receive Date: 20150518
  Receipt Date: 20170116
  Transmission Date: 20170428
  Serious: No
  Sender: FDA-Public Use
  Company Number: US-JNJFOC-20150505842

PATIENT
  Sex: Male
  Weight: 73.66 kg

DRUGS (6)
  1. CONCERTA [Suspect]
     Active Substance: METHYLPHENIDATE HYDROCHLORIDE
     Indication: ATTENTION DEFICIT/HYPERACTIVITY DISORDER
     Route: 048
  2. RISPERDAL [Suspect]
     Active Substance: RISPERIDONE
     Indication: DEPRESSION
     Route: 048
     Dates: start: 2006, end: 2008
  3. RISPERDAL [Suspect]
     Active Substance: RISPERIDONE
     Indication: ATTENTION DEFICIT/HYPERACTIVITY DISORDER
     Route: 048
     Dates: start: 2006, end: 2008
  4. RISPERDAL [Suspect]
     Active Substance: RISPERIDONE
     Indication: PANIC DISORDER
     Route: 048
     Dates: start: 2006, end: 2008
  5. CONCERTA [Suspect]
     Active Substance: METHYLPHENIDATE HYDROCHLORIDE
     Indication: ATTENTION DEFICIT/HYPERACTIVITY DISORDER
     Dosage: EVERY MORNING
     Route: 048
     Dates: start: 20071009, end: 20071231
  6. RISPERDAL [Suspect]
     Active Substance: RISPERIDONE
     Indication: ANXIETY DISORDER
     Route: 048
     Dates: start: 2006, end: 2008

REACTIONS (6)
  - Hyperprolactinaemia [Unknown]
  - Galactorrhoea [Unknown]
  - Gynaecomastia [Unknown]
  - Product use issue [Unknown]
  - Abnormal weight gain [Unknown]
  - Off label use [Unknown]

NARRATIVE: CASE EVENT DATE: 2006
